FAERS Safety Report 9706557 (Version 2)
Quarter: 2013Q4

REPORT INFORMATION
  Report Type: Spontaneous
  Country: ES (occurrence: ES)
  Receive Date: 20131125
  Receipt Date: 20131205
  Transmission Date: 20140711
  Serious: Yes (Life-Threatening, Other)
  Sender: FDA-Public Use
  Company Number: ES-ROCHE-1306687

PATIENT
  Age: 58 Year
  Sex: Female
  Weight: 42 kg

DRUGS (3)
  1. AVASTIN [Suspect]
     Indication: BREAST CANCER METASTATIC
     Route: 042
     Dates: start: 20130426, end: 20130802
  2. AVASTIN [Suspect]
     Route: 042
     Dates: start: 20130819, end: 20130930
  3. TAXOL [Concomitant]
     Indication: BREAST CANCER METASTATIC

REACTIONS (4)
  - Congestive cardiomyopathy [Not Recovered/Not Resolved]
  - Cardiotoxicity [Unknown]
  - Ejection fraction decreased [Unknown]
  - Pulmonary hypertension [Unknown]
